FAERS Safety Report 20728517 (Version 1)
Quarter: 2022Q2

REPORT INFORMATION
  Report Type: Spontaneous
  Country: DE (occurrence: DE)
  Receive Date: 20220420
  Receipt Date: 20220420
  Transmission Date: 20220721
  Serious: Yes (Hospitalization, Other)
  Sender: FDA-Public Use
  Company Number: DE-NOVOPROD-909520

PATIENT
  Age: 85 Year
  Sex: Female

DRUGS (2)
  1. LEVEMIR [Suspect]
     Active Substance: INSULIN DETEMIR
     Indication: Product used for unknown indication
     Dosage: UNK(12-0-7)
     Route: 065
  2. APIDRA [Concomitant]
     Active Substance: INSULIN GLULISINE
     Indication: Product used for unknown indication
     Dosage: UNK (DEPENDING ON BLOOD GLUCOSE AND FOOD INTAKE)
     Route: 065

REACTIONS (4)
  - Ketoacidosis [Unknown]
  - Urinary tract infection [Unknown]
  - Blood glucose fluctuation [Unknown]
  - Treatment noncompliance [Unknown]
